FAERS Safety Report 9205102 (Version 1)
Quarter: 2013Q2

REPORT INFORMATION
  Report Type: Report from Study
  Country: US (occurrence: US)
  Receive Date: 20130402
  Receipt Date: 20130402
  Transmission Date: 20140414
  Serious: Yes (Other)
  Sender: FDA-Public Use
  Company Number: US-MYLANLABS-2013S1006163

PATIENT
  Age: 17 Year
  Sex: Male

DRUGS (1)
  1. AMNESTEEM CAPSULES [Suspect]
     Indication: ACNE CYSTIC
     Route: 048
     Dates: start: 20130110, end: 20130311

REACTIONS (9)
  - Suicidal ideation [Recovered/Resolved]
  - Feelings of worthlessness [Recovered/Resolved]
  - Mood swings [Recovered/Resolved]
  - Depression [Recovered/Resolved]
  - Amnesia [Recovered/Resolved]
  - Decreased appetite [Recovered/Resolved]
  - Insomnia [Recovered/Resolved]
  - Nausea [Recovered/Resolved]
  - Myalgia [Recovered/Resolved]
